FAERS Safety Report 4676099-4 (Version None)
Quarter: 2005Q2

REPORT INFORMATION
  Report Type: 
  Country: None (occurrence: None)
  Receive Date: 20050527
  Receipt Date: 20050324
  Transmission Date: 20051028
  Serious: Yes (Disabling, Other)
  Sender: FDA-Public Use
  Company Number: US-GLAXOSMITHKLINE-A0551324A

PATIENT
  Age: 34 Year
  Sex: Male

DRUGS (1)
  1. WELLBUTRIN XL [Suspect]
     Indication: MAJOR DEPRESSION
     Route: 048

REACTIONS (1)
  - GRAND MAL CONVULSION [None]
